FAERS Safety Report 20701702 (Version 1)
Quarter: 2022Q2

REPORT INFORMATION
  Report Type: Spontaneous
  Country: US (occurrence: None)
  Receive Date: 20220411
  Receipt Date: 20220411
  Transmission Date: 20220721
  Serious: No
  Sender: FDA-Public Use
  Company Number: None

PATIENT
  Age: 62 Year
  Sex: Female

DRUGS (2)
  1. LETAIRIS [Suspect]
     Active Substance: AMBRISENTAN
     Indication: Hypoxia
     Dates: start: 20220323
  2. LETAIRIS [Suspect]
     Active Substance: AMBRISENTAN
     Indication: Lung disorder

REACTIONS (2)
  - Blood glucose increased [None]
  - Dizziness [None]

NARRATIVE: CASE EVENT DATE: 20220408
